FAERS Safety Report 10621672 (Version 1)
Quarter: 2014Q4

REPORT INFORMATION
  Report Type: Spontaneous
  Country: US (occurrence: None)
  Receive Date: 20141201
  Receipt Date: 20141201
  Transmission Date: 20150529
  Serious: Yes (Other)
  Sender: FDA-Public Use
  Company Number: None

PATIENT
  Age: 33 Year
  Sex: Female
  Weight: 56.7 kg

DRUGS (1)
  1. MIRENA [Suspect]
     Active Substance: LEVONORGESTREL

REACTIONS (26)
  - Mood altered [None]
  - Headache [None]
  - Asthenia [None]
  - Hot flush [None]
  - Contusion [None]
  - Fungal infection [None]
  - Abdominal distension [None]
  - Migraine [None]
  - Memory impairment [None]
  - Libido decreased [None]
  - Feeling abnormal [None]
  - Hunger [None]
  - Myalgia [None]
  - Hypoaesthesia [None]
  - Feeling hot [None]
  - Initial insomnia [None]
  - Menorrhagia [None]
  - Fatigue [None]
  - Food craving [None]
  - Muscle spasms [None]
  - Neuralgia [None]
  - Bacterial vaginosis [None]
  - Arthralgia [None]
  - Skin discolouration [None]
  - Palpitations [None]
  - Dyspepsia [None]

NARRATIVE: CASE EVENT DATE: 20141129
